FAERS Safety Report 8296244-1 (Version None)
Quarter: 2012Q2

REPORT INFORMATION
  Report Type: 
  Country: None (occurrence: None)
  Receive Date: 20120418
  Receipt Date: 20120416
  Transmission Date: 20120825
  Serious: Yes (Death, Other)
  Sender: FDA-Public Use
  Company Number: CHPA2012US008750

PATIENT
  Age: 86 Year
  Sex: Female

DRUGS (2)
  1. PREVACID 24 HR [Suspect]
     Indication: DYSPEPSIA
     Dosage: UNK, UNK
     Route: 048
  2. ANTICOAGULANTS [Suspect]
     Dosage: UNK, UNK

REACTIONS (4)
  - DEATH [None]
  - OFF LABEL USE [None]
  - COAGULOPATHY [None]
  - GASTROINTESTINAL OBSTRUCTION [None]
